FAERS Safety Report 8060722-0 (Version None)
Quarter: 2012Q1

REPORT INFORMATION
  Report Type: 
  Country: None (occurrence: None)
  Receive Date: 20120120
  Receipt Date: 20120112
  Transmission Date: 20120608
  Serious: Yes (Other)
  Sender: FDA-Public Use
  Company Number: ES-AMGEN-ESPSP2012002479

PATIENT
  Sex: Female

DRUGS (2)
  1. ALENDRONATE SODIUM [Concomitant]
     Indication: OSTEOPOROSIS
     Dosage: UNK
     Dates: start: 20110601, end: 20111110
  2. PROLIA [Suspect]
     Indication: OSTEOPOROSIS
     Dosage: UNK
     Dates: start: 20111122

REACTIONS (3)
  - PAIN IN JAW [None]
  - GINGIVAL BLEEDING [None]
  - OSTEONECROSIS OF JAW [None]
